FAERS Safety Report 5019582-4 (Version None)
Quarter: 2006Q2

REPORT INFORMATION
  Report Type: 
  Country: None (occurrence: None)
  Receive Date: 20060530
  Receipt Date: 20060515
  Transmission Date: 20061013
  Serious: Yes (Hospitalization)
  Sender: FDA-Public Use
  Company Number: CHPA2006US04806

PATIENT
  Age: 75 Year
  Sex: Male
  Weight: 78.9 kg

DRUGS (10)
  1. MAALOX MS TOTAL STOMACH RELIEF (NCH)(BISMUTH SUBSALICYLATE) SUSPENSION [Suspect]
     Indication: NAUSEA
     Dosage: 6 TSP, BID, ORAL; SEE IMAGE
     Route: 048
     Dates: start: 20060509, end: 20060511
  2. MAALOX MS TOTAL STOMACH RELIEF (NCH)(BISMUTH SUBSALICYLATE) SUSPENSION [Suspect]
     Indication: NAUSEA
     Dosage: 6 TSP, BID, ORAL; SEE IMAGE
     Route: 048
     Dates: start: 20060514, end: 20060514
  3. MAALOX UNKNOWN (NCH) (UNKNOWN) SUSPENSION [Suspect]
     Indication: GASTRIC DISORDER
     Dosage: 6 TSP, BID, ORAL
     Route: 048
     Dates: start: 20060511, end: 20060513
  4. ASPIRIN [Concomitant]
  5. SENOKOT /USA/ (SENNA, SENNA ALEXANDRINA) [Concomitant]
  6. LASIX [Concomitant]
  7. VASOTEC [Concomitant]
  8. PREVACID [Concomitant]
  9. VYTORIN [Concomitant]
  10. FLOMAX [Concomitant]

REACTIONS (5)
  - ABDOMINAL DISTENSION [None]
  - BLOOD URINE PRESENT [None]
  - GASTRIC DISORDER [None]
  - NAUSEA [None]
  - URINE COLOUR ABNORMAL [None]
